FAERS Safety Report 21601609 (Version 3)
Quarter: 2022Q4

REPORT INFORMATION
  Report Type: Report from Study
  Country: US (occurrence: US)
  Receive Date: 20221116
  Receipt Date: 20221223
  Transmission Date: 20230112
  Serious: No
  Sender: FDA-Public Use
  Company Number: US-002147023-NVSC2022US254918

PATIENT
  Age: 68 Year
  Sex: Female

DRUGS (1)
  1. ENTRESTO [Suspect]
     Active Substance: SACUBITRIL\VALSARTAN
     Indication: Ejection fraction
     Dosage: UNK (24/26 MG PO BID)
     Route: 065
     Dates: start: 20220912

REACTIONS (3)
  - Malaise [Unknown]
  - COVID-19 [Recovered/Resolved]
  - Throat clearing [Unknown]

NARRATIVE: CASE EVENT DATE: 20221101
